FAERS Safety Report 5521884-X (Version None)
Quarter: 2007Q4

REPORT INFORMATION
  Report Type: 
  Country: None (occurrence: None)
  Receive Date: 20071115
  Receipt Date: 20071107
  Transmission Date: 20080405
  Serious: Yes (Hospitalization)
  Sender: FDA-Public Use
  Company Number: E2020-01626-SPO-JP

PATIENT
  Age: 65 Year
  Sex: Female

DRUGS (6)
  1. ARICEPT [Suspect]
     Indication: DEMENTIA ALZHEIMER'S TYPE
     Dosage: 5 MG, 1 IN 1 D, ORAL
     Route: 048
     Dates: start: 20061218, end: 20070914
  2. DIOVAN [Concomitant]
  3. ZOLPIDEM TARTRATE [Concomitant]
  4. LORAMET (LORMETAZEPAM) [Concomitant]
  5. OREN-GEDOKU-TO (OURENGEDOKUTOU) [Concomitant]
  6. YOKU-KAN-SAN (YOKUKAN-SAN) [Concomitant]

REACTIONS (6)
  - HYPERHIDROSIS [None]
  - INSOMNIA [None]
  - MALAISE [None]
  - MOBILITY DECREASED [None]
  - RHABDOMYOLYSIS [None]
  - TREMOR [None]
